FAERS Safety Report 13303490 (Version 2)
Quarter: 2017Q2

REPORT INFORMATION
  Report Type: Spontaneous
  Country: US (occurrence: US)
  Receive Date: 20170307
  Receipt Date: 20170609
  Transmission Date: 20170830
  Serious: No
  Sender: FDA-Public Use
  Company Number: US-AMGEN-USASP2017004434

PATIENT
  Age: 25 Year
  Sex: Male

DRUGS (9)
  1. ZANTAC [Concomitant]
     Active Substance: RANITIDINE HYDROCHLORIDE
  2. NYSTATIN. [Concomitant]
     Active Substance: NYSTATIN
  3. ROBAXIN [Concomitant]
     Active Substance: METHOCARBAMOL
     Dosage: UNK UNK, TID
  4. BLINCYTO [Suspect]
     Active Substance: BLINATUMOMAB
     Indication: B-CELL LYMPHOMA RECURRENT
     Dosage: 28 MUG, QD
     Route: 042
     Dates: start: 20170106
  5. BIOTIN [Concomitant]
     Active Substance: BIOTIN
  6. CALCIUM [Concomitant]
     Active Substance: CALCIUM
     Indication: SUPPLEMENTATION THERAPY
  7. ZOFRAN [Concomitant]
     Active Substance: ONDANSETRON HYDROCHLORIDE
  8. MIRALAX [Concomitant]
     Active Substance: POLYETHYLENE GLYCOL 3350
  9. BACTRIM [Concomitant]
     Active Substance: SULFAMETHOXAZOLE\TRIMETHOPRIM
     Indication: PROPHYLAXIS

REACTIONS (1)
  - Device issue [Unknown]

NARRATIVE: CASE EVENT DATE: 20170109
